FAERS Safety Report 20686960 (Version 1)
Quarter: 2022Q2

REPORT INFORMATION
  Report Type: Spontaneous
  Country: US (occurrence: US)
  Receive Date: 20220407
  Receipt Date: 20220407
  Transmission Date: 20220721
  Serious: No
  Sender: FDA-Public Use
  Company Number: US-SA-SAC20220406001412

PATIENT
  Sex: Male

DRUGS (2)
  1. FABRAZYME [Suspect]
     Active Substance: AGALSIDASE BETA
     Indication: Fabry^s disease
     Dosage: 70 MG, QOW
     Route: 042
     Dates: start: 20151019
  2. FABRAZYME [Suspect]
     Active Substance: AGALSIDASE BETA
     Dosage: 20MG
     Route: 042
     Dates: start: 20151019

REACTIONS (1)
  - Cardiac ablation [Unknown]
